FAERS Safety Report 5154903-3 (Version None)
Quarter: 2006Q4

REPORT INFORMATION
  Report Type: 
  Country: None (occurrence: None)
  Receive Date: 20061121
  Receipt Date: 20050621
  Transmission Date: 20070319
  Serious: Yes (Other)
  Sender: FDA-Public Use
  Company Number: 2006AC01920

PATIENT
  Age: 8353 Day
  Sex: Male

DRUGS (5)
  1. SEROQUEL [Suspect]
     Indication: SCHIZOAFFECTIVE DISORDER
     Route: 048
     Dates: start: 20050401, end: 20050601
  2. SEROQUEL [Suspect]
     Dosage: +INCREASED TO TARGET RESIDUAL DELUSIONS AND IRRITABILITY
     Route: 048
     Dates: start: 20050610, end: 20050623
  3. SEROQUEL [Suspect]
     Dosage: DECREASED DUE TO PHOTOPSIA
     Route: 048
  4. LITHIUM CARBONATE [Suspect]
     Indication: SCHIZOAFFECTIVE DISORDER
     Dates: start: 20050426
  5. CLONAZEPAM [Suspect]
     Indication: SCHIZOAFFECTIVE DISORDER
     Dosage: OVER A 3 MONTH HOSPITALISATION PERIOD

REACTIONS (3)
  - EYE PAIN [None]
  - HEADACHE [None]
  - PHOTOPSIA [None]
